FAERS Safety Report 22634137 (Version 1)
Quarter: 2023Q2

REPORT INFORMATION
  Report Type: Spontaneous
  Country: US (occurrence: US)
  Receive Date: 20230623
  Receipt Date: 20230623
  Transmission Date: 20230721
  Serious: No
  Sender: FDA-Public Use
  Company Number: US-PFIZER INC-202300176637

PATIENT
  Age: 72 Year
  Sex: Male
  Weight: 82.1 kg

DRUGS (9)
  1. VYNDAMAX [Suspect]
     Active Substance: TAFAMIDIS
     Indication: Cardiomyopathy
     Dosage: 61 MG, 1X/DAY (TOOK ONE THIS MORNING)
  2. VYNDAMAX [Suspect]
     Active Substance: TAFAMIDIS
     Dosage: 2 DF(TAKING 2 CAPSULE)
  3. VYNDAMAX [Suspect]
     Active Substance: TAFAMIDIS
     Dosage: 61 MG
  4. ALBUTEROL [Concomitant]
     Active Substance: ALBUTEROL
     Indication: Nephropathy
     Dosage: UNK
  5. LIPITOR [Concomitant]
     Active Substance: ATORVASTATIN CALCIUM
     Dosage: 40 MILLIGRAMS 1 TABLET BY MOUTH
     Route: 048
  6. BUMETANIDE [Concomitant]
     Active Substance: BUMETANIDE
     Dosage: 1 MILLIGRAM TABLET TAKE 2 TABLETS TWICE DAILY
     Route: 048
  7. IRON [Concomitant]
     Active Substance: IRON
     Dosage: UNK
  8. CHOLECALCIFEROL [Concomitant]
     Active Substance: CHOLECALCIFEROL
     Dosage: UNK
  9. COZAAR [Concomitant]
     Active Substance: LOSARTAN POTASSIUM
     Dosage: 25 MG

REACTIONS (4)
  - Off label use [Unknown]
  - Incorrect dose administered [Unknown]
  - Irritability [Unknown]
  - Weight fluctuation [Unknown]
